FAERS Safety Report 14251802 (Version 1)
Quarter: 2017Q4

REPORT INFORMATION
  Report Type: Report from Study
  Country: US (occurrence: US)
  Receive Date: 20171205
  Receipt Date: 20171205
  Transmission Date: 20180321
  Serious: Yes (Hospitalization)
  Sender: FDA-Public Use
  Company Number: US-JNJFOC-20171101633

PATIENT
  Sex: Female
  Weight: 113.38 kg

DRUGS (2)
  1. TRAMADOL HYDROCHLORIDE. [Suspect]
     Active Substance: TRAMADOL HYDROCHLORIDE
     Indication: PRODUCT USED FOR UNKNOWN INDICATION
     Route: 065
  2. OPSUMIT [Suspect]
     Active Substance: MACITENTAN
     Indication: PULMONARY ARTERIAL HYPERTENSION
     Route: 048

REACTIONS (8)
  - Rotator cuff syndrome [Unknown]
  - Vomiting [Unknown]
  - Dyspnoea [Unknown]
  - Sciatica [Unknown]
  - Nasal congestion [Unknown]
  - Productive cough [Unknown]
  - Sinus pain [Unknown]
  - Throat irritation [Unknown]
